FAERS Safety Report 10752532 (Version 8)
Quarter: 2016Q1

REPORT INFORMATION
  Report Type: Report from Study
  Country: BR (occurrence: BR)
  Receive Date: 20150130
  Receipt Date: 20160323
  Transmission Date: 20160525
  Serious: Yes (Other)
  Sender: FDA-Public Use
  Company Number: PHHY2014BR042951

PATIENT
  Age: 73 Year
  Sex: Female
  Weight: 62 kg

DRUGS (10)
  1. SANDOSTATIN LAR DEPOT [Suspect]
     Active Substance: OCTREOTIDE ACETATE
     Indication: CARCINOID SYNDROME
     Dosage: 10 MG (1 AMPOULE), QMO
     Route: 030
     Dates: start: 2011
  2. TIORFAN [Concomitant]
     Active Substance: RACECADOTRIL
     Indication: PROCEDURAL PAIN
     Route: 048
  3. ADDERA D3 [Concomitant]
     Active Substance: CHOLECALCIFEROL
     Indication: MINERAL SUPPLEMENTATION
     Dosage: 03 DF, QW
     Route: 065
  4. SANDOSTATIN LAR DEPOT [Suspect]
     Active Substance: OCTREOTIDE ACETATE
     Indication: NEUROENDOCRINE TUMOUR
     Dosage: 20 MG, UNK
     Route: 030
  5. ENALAPRIL MALEATE. [Concomitant]
     Active Substance: ENALAPRIL MALEATE
     Indication: HYPERTENSION
     Dosage: 10 MG, QD
     Route: 048
  6. SANDOSTATIN LAR DEPOT [Suspect]
     Active Substance: OCTREOTIDE ACETATE
     Dosage: 30 MG (1 AMPOULE), EVERY 28 DAYS
     Route: 030
     Dates: start: 201201
  7. CREON [Concomitant]
     Active Substance: PANCRELIPASE AMYLASE\PANCRELIPASE LIPASE\PANCRELIPASE PROTEASE
     Indication: PANCREATIC DISORDER
     Dosage: 25 MG, UNK
     Route: 048
  8. TYLENOL [Concomitant]
     Active Substance: ACETAMINOPHEN
     Indication: HEADACHE
     Route: 065
  9. NATRILIX [Concomitant]
     Active Substance: INDAPAMIDE
     Indication: HYPERTENSION
     Dosage: 1.5 MG, QD
     Route: 048
  10. CREON [Concomitant]
     Active Substance: PANCRELIPASE AMYLASE\PANCRELIPASE LIPASE\PANCRELIPASE PROTEASE
     Dosage: 1 DF, QD
     Route: 048

REACTIONS (23)
  - Injection site erythema [Recovered/Resolved]
  - Confusional state [Not Recovered/Not Resolved]
  - Mood altered [Unknown]
  - Injection site mass [Recovered/Resolved]
  - Injection site induration [Recovered/Resolved]
  - Injection site pain [Recovered/Resolved]
  - Crying [Unknown]
  - Malabsorption from injection site [Unknown]
  - Needle issue [Unknown]
  - Injection site bruising [Recovered/Resolved]
  - Depression [Recovering/Resolving]
  - Insomnia [Recovering/Resolving]
  - Injection site bruising [Unknown]
  - Weight decreased [Not Recovered/Not Resolved]
  - Drug ineffective [Unknown]
  - Diarrhoea [Recovering/Resolving]
  - Wrong technique in product usage process [Unknown]
  - Amnesia [Not Recovered/Not Resolved]
  - Tachycardia [Recovering/Resolving]
  - Thyroid disorder [Unknown]
  - Injection site pain [Unknown]
  - Nausea [Recovered/Resolved]
  - Asthenia [Unknown]

NARRATIVE: CASE EVENT DATE: 201211
